FAERS Safety Report 8683578 (Version 2)
Quarter: 2012Q4

REPORT INFORMATION
  Report Type: 
  Country: US (occurrence: US)
  Receive Date: 20120726
  Receipt Date: 20121114
  Transmission Date: 20130627
  Serious: Yes (Hospitalization, Other)
  Sender: FDA-Public Use
  Company Number: US-BAYER-2012-073308

PATIENT
  Age: 17 Year
  Sex: Female
  Weight: 58.96 kg

DRUGS (3)
  1. YAZ [Suspect]
     Indication: ACNE
     Dosage: UNK
     Dates: start: 200906, end: 200911
  2. YAZ [Suspect]
     Indication: PREMENSTRUAL SYNDROME
  3. PREVACID [Concomitant]

REACTIONS (10)
  - Gallbladder injury [None]
  - Hepatobiliary scan abnormal [None]
  - Injury [None]
  - Pain [None]
  - Emotional distress [None]
  - General physical health deterioration [None]
  - Anxiety [None]
  - Pain [None]
  - Scar [None]
  - Mental disorder [None]
